FAERS Safety Report 11803182 (Version 1)
Quarter: 2015Q4

REPORT INFORMATION
  Report Type: Report from Study
  Country: ES (occurrence: ES)
  Receive Date: 20151204
  Receipt Date: 20151204
  Transmission Date: 20160305
  Serious: Yes (Congenital Anomaly, Other)
  Sender: FDA-Public Use
  Company Number: ES-PFIZER INC-2015425028

PATIENT

DRUGS (1)
  1. FLUCONAZOLE. [Suspect]
     Active Substance: FLUCONAZOLE
     Indication: VULVOVAGINAL CANDIDIASIS
     Dosage: 150 MG, SINGLE
     Route: 064

REACTIONS (3)
  - Tracheomalacia [Recovered/Resolved]
  - Developmental hip dysplasia [Recovered/Resolved]
  - Maternal exposure during pregnancy [Recovered/Resolved]
